FAERS Safety Report 23408871 (Version 1)
Quarter: 2024Q1

REPORT INFORMATION
  Report Type: Spontaneous
  Country: US (occurrence: US)
  Receive Date: 20240117
  Receipt Date: 20240117
  Transmission Date: 20240409
  Serious: No
  Sender: FDA-Public Use
  Company Number: US-009507513-2312USA007690

PATIENT
  Age: 45 Year
  Sex: Female

DRUGS (6)
  1. JANUVIA [Suspect]
     Active Substance: SITAGLIPTIN PHOSPHATE
     Indication: Latent autoimmune diabetes in adults
     Dosage: 100 MILLIGRAM, QD
     Route: 048
     Dates: start: 201801, end: 201804
  2. JANUVIA [Suspect]
     Active Substance: SITAGLIPTIN PHOSPHATE
     Dosage: 100 MILLIGRAM, QD
     Route: 048
     Dates: start: 20180717
  3. ERGOCALCIFEROL [Concomitant]
     Active Substance: ERGOCALCIFEROL
     Indication: Latent autoimmune diabetes in adults
     Dosage: 50000 IU INTERNATIONAL UNIT(S), WEEKLY
     Dates: start: 201801
  4. METFORMIN [Concomitant]
     Active Substance: METFORMIN HYDROCHLORIDE
     Indication: Latent autoimmune diabetes in adults
     Dosage: UNK
     Dates: start: 201607
  5. GLIPIZIDE [Concomitant]
     Active Substance: GLIPIZIDE
     Indication: Latent autoimmune diabetes in adults
     Dosage: UNK
     Dates: start: 201608
  6. INSULIN NOS [Concomitant]
     Active Substance: INSULIN NOS
     Indication: Latent autoimmune diabetes in adults
     Dosage: BOLUS
     Dates: start: 201608

REACTIONS (1)
  - Product use in unapproved indication [Unknown]

NARRATIVE: CASE EVENT DATE: 20180101
